FAERS Safety Report 6884224-X (Version None)
Quarter: 2010Q3

REPORT INFORMATION
  Report Type: 
  Country: None (occurrence: None)
  Receive Date: 20100729
  Receipt Date: 20070609
  Transmission Date: 20110219
  Serious: Yes (Other)
  Sender: FDA-Public Use
  Company Number: US-PFIZER INC-2007047302

PATIENT
  Sex: Male
  Weight: 95.454 kg

DRUGS (8)
  1. CELEBREX [Suspect]
     Indication: ARTHRALGIA
     Dates: start: 20070608, end: 20070608
  2. CELEBREX [Suspect]
     Indication: JOINT SWELLING
  3. SYNTHROID [Concomitant]
  4. LIPITOR [Concomitant]
  5. LISINOPRIL [Concomitant]
  6. ACETYLSALICYLIC ACID SRT [Concomitant]
  7. ALLOPURINOL [Concomitant]
  8. TOPROL-XL [Concomitant]

REACTIONS (5)
  - EYE SWELLING [None]
  - GENERALISED ERYTHEMA [None]
  - NAUSEA [None]
  - OEDEMA PERIPHERAL [None]
  - PARAESTHESIA [None]
